FAERS Safety Report 16785291 (Version 1)
Quarter: 2019Q3

REPORT INFORMATION
  Report Type: Spontaneous
  Country: US (occurrence: US)
  Receive Date: 20190909
  Receipt Date: 20190909
  Transmission Date: 20191005
  Serious: Yes (Hospitalization)
  Sender: FDA-Public Use
  Company Number: PHHY2019US206916

PATIENT
  Age: 44 Year
  Sex: Male

DRUGS (1)
  1. DOXYCYCLINE. [Suspect]
     Active Substance: DOXYCYCLINE
     Indication: ANTIBIOTIC THERAPY
     Dosage: 100 MG, Q12H
     Route: 048

REACTIONS (5)
  - Lymphadenopathy [Unknown]
  - Acute generalised exanthematous pustulosis [Unknown]
  - Rash morbilliform [Unknown]
  - Pruritus [Unknown]
  - Rash erythematous [Unknown]
